FAERS Safety Report 10061562 (Version 1)
Quarter: 2014Q2

REPORT INFORMATION
  Report Type: Spontaneous
  Country: GB (occurrence: None)
  Receive Date: 20140403
  Receipt Date: 20140403
  Transmission Date: 20141212
  Serious: Yes (Other)
  Sender: FDA-Public Use
  Company Number: NL01PV14.35639

PATIENT
  Age: 68 Year
  Sex: Male
  Weight: 82.6 kg

DRUGS (3)
  1. TAMSULOSIN [Suspect]
     Indication: DYSURIA
     Route: 048
     Dates: start: 20120610, end: 20120916
  2. AMLODIPINE (AMLODIPINE) [Concomitant]
  3. BENDROFLUMETHIAZIDE (BENDROFLUMETHIAZIDE) [Concomitant]

REACTIONS (5)
  - Atrial fibrillation [None]
  - Atrial flutter [None]
  - Condition aggravated [None]
  - Drug ineffective [None]
  - Extrasystoles [None]
